FAERS Safety Report 12347030 (Version 1)
Quarter: 2016Q2

REPORT INFORMATION
  Report Type: Spontaneous
  Country: US (occurrence: None)
  Receive Date: 20160506
  Receipt Date: 20160506
  Transmission Date: 20160815
  Serious: Yes (Other)
  Sender: FDA-Public Use
  Company Number: None

PATIENT
  Age: 49 Year
  Sex: Female
  Weight: 100.4 kg

DRUGS (1)
  1. FENTANYL PATCHES [Suspect]
     Active Substance: FENTANYL
     Dosage: 25 MCG, 50MCG 75 MCG
     Dates: start: 20140904, end: 20141201

REACTIONS (2)
  - Drug ineffective [None]
  - Treatment failure [None]

NARRATIVE: CASE EVENT DATE: 20140904
